FAERS Safety Report 6457429-X (Version None)
Quarter: 2009Q4

REPORT INFORMATION
  Report Type: 
  Country: None (occurrence: None)
  Receive Date: 20091120
  Receipt Date: 20091110
  Transmission Date: 20100525
  Serious: Yes (Death, Hospitalization)
  Sender: FDA-Public Use
  Company Number: 2009-04310

PATIENT
  Age: 60 Year
  Sex: Female

DRUGS (6)
  1. VELCADE [Suspect]
     Indication: MULTIPLE MYELOMA
     Dosage: 2 MG, INTRAVENOUS
     Route: 042
     Dates: start: 20060510, end: 20080402
  2. AUGMENT (CLAVULANATE POTASSIUM, AMOXICILLIN TRIHYDRATE) [Concomitant]
  3. ACETYLCYSTEINE [Concomitant]
  4. METRONIDAZOLE [Concomitant]
  5. ITRACONAZOLE [Concomitant]
  6. FLUCONAZOLE [Concomitant]

REACTIONS (8)
  - BODY TINEA [None]
  - BRONCHOPNEUMONIA [None]
  - DIARRHOEA [None]
  - PATHOLOGICAL FRACTURE [None]
  - SEPSIS [None]
  - SKIN LESION [None]
  - TINEA INFECTION [None]
  - TRICHOPHYTOSIS [None]
